FAERS Safety Report 8884874 (Version 3)
Quarter: 2012Q4

REPORT INFORMATION
  Report Type: 
  Country: US (occurrence: US)
  Receive Date: 20121102
  Receipt Date: 20121210
  Transmission Date: 20130627
  Serious: Yes (Other)
  Sender: FDA-Public Use
  Company Number: US-PFIZER INC-2012273108

PATIENT
  Age: 60 Year
  Sex: Female
  Weight: 76.64 kg

DRUGS (16)
  1. LYRICA [Suspect]
     Indication: FIBROMYALGIA
     Dosage: 75 mg, 3x/day
     Route: 048
     Dates: start: 201111
  2. LYRICA [Suspect]
     Dosage: 150 mg, 3x/day
     Route: 048
  3. NEURONTIN [Suspect]
     Dosage: UNK
  4. NORVASC [Suspect]
     Indication: BLOOD PRESSURE HIGH
     Dosage: 10 mg, 1x/day
     Route: 048
     Dates: start: 2009
  5. NORVASC [Concomitant]
     Dosage: 10 mg, UNK
  6. LISINOPRIL W/HYDROCHLOROTHIAZIDE [Concomitant]
     Dosage: 20/12.5 mg
  7. LISINOPRIL [Concomitant]
     Dosage: UNK
  8. BABY ASPIRIN [Concomitant]
     Dosage: UNK
  9. CALCIUM [Concomitant]
     Dosage: UNK, 1x/day
  10. VITAMIN D [Concomitant]
     Dosage: UNK, 1x/day
  11. VITAMIN B12 [Concomitant]
     Dosage: UNK
  12. AMBIEN [Concomitant]
     Dosage: UNK
  13. VALIUM [Concomitant]
     Dosage: UNK
  14. PERCOCET [Concomitant]
     Dosage: UNK
  15. NAPROXEN [Concomitant]
     Dosage: UNK
  16. METOPROLOL [Concomitant]
     Dosage: UNK

REACTIONS (11)
  - Cataract [Unknown]
  - Blood potassium increased [Recovered/Resolved]
  - Hypersensitivity [Unknown]
  - Pain in extremity [Recovered/Resolved]
  - Back pain [Recovered/Resolved]
  - Pain [Recovered/Resolved]
  - Myalgia [Recovered/Resolved]
  - Burning sensation [Recovered/Resolved]
  - Insomnia [Recovered/Resolved]
  - Periarthritis [Unknown]
  - Back disorder [Unknown]
